FAERS Safety Report 19305031 (Version 2)
Quarter: 2021Q2

REPORT INFORMATION
  Report Type: Report from Study
  Country: BR (occurrence: BR)
  Receive Date: 20210526
  Receipt Date: 20210621
  Transmission Date: 20210717
  Serious: Yes (Hospitalization)
  Sender: FDA-Public Use
  Company Number: BR-BRISTOL-MYERS SQUIBB COMPANY-BMS-2020-038417

PATIENT
  Age: 81 Year
  Sex: Male
  Weight: 57 kg

DRUGS (19)
  1. DIPYRONE [Concomitant]
     Active Substance: DIPYRONE
     Indication: MUSCULOSKELETAL PAIN
     Dosage: 1 GRAM
     Route: 042
     Dates: start: 20200429, end: 20200503
  2. ENALAPRIL [Concomitant]
     Active Substance: ENALAPRIL
     Indication: PRODUCT USED FOR UNKNOWN INDICATION
     Dosage: 10 MILLIGRAM
     Route: 048
     Dates: start: 2011
  3. PARACETAMOL [Concomitant]
     Active Substance: ACETAMINOPHEN
     Dosage: 200 MILLIGRAM
     Route: 048
     Dates: start: 20200430, end: 20200502
  4. METOCLOPRAMIDE. [Concomitant]
     Active Substance: METOCLOPRAMIDE
     Dosage: 10 MILLIGRAM
     Route: 048
     Dates: start: 20200502, end: 20200502
  5. DIPYRONE [Concomitant]
     Active Substance: DIPYRONE
     Dosage: 4 GRAM
     Route: 048
     Dates: start: 20200429
  6. TRAMADOL. [Concomitant]
     Active Substance: TRAMADOL
     Indication: MUSCULOSKELETAL PAIN
     Dosage: 50 MILLIGRAM
     Route: 042
     Dates: start: 20200429, end: 20200503
  7. CLOPIDOGREL [Concomitant]
     Active Substance: CLOPIDOGREL BISULFATE
     Indication: PRODUCT USED FOR UNKNOWN INDICATION
     Dosage: 75 MILLIGRAM
     Route: 048
     Dates: start: 201610
  8. METOCLOPRAMIDE. [Concomitant]
     Active Substance: METOCLOPRAMIDE
     Indication: NAUSEA
     Dosage: 40 MILLIGRAM
     Route: 048
     Dates: start: 20200406, end: 20200501
  9. PANTOPRAZOLE [Concomitant]
     Active Substance: PANTOPRAZOLE
     Indication: PRODUCT USED FOR UNKNOWN INDICATION
     Dosage: 40 MILLIGRAM
     Route: 048
     Dates: start: 20200430
  10. SALINE [BORIC ACID;EDETATE DISODIUM;SODIUM BORATE;SORBIC ACID] [Concomitant]
     Indication: DEHYDRATION
     Dosage: 1 DOSAGE FORM
     Route: 051
     Dates: start: 20200429, end: 20200502
  11. LACTULOSE. [Concomitant]
     Active Substance: LACTULOSE
     Indication: CONSTIPATION
     Dosage: 1 DOSAGE FORM
     Route: 048
     Dates: start: 20200501
  12. BMS?986321?01 [Suspect]
     Active Substance: INVESTIGATIONAL PRODUCT
     Indication: MALIGNANT MELANOMA
     Dosage: 0.33 MILLIGRAM
     Route: 042
     Dates: start: 20200406
  13. PARACETAMOL [Concomitant]
     Active Substance: ACETAMINOPHEN
     Indication: MUSCULOSKELETAL PAIN
     Dosage: 750 MILLIGRAM
     Route: 048
     Dates: start: 20200429, end: 20200503
  14. PARACETAMOL [Concomitant]
     Active Substance: ACETAMINOPHEN
     Dosage: 4 GRAM
     Route: 048
     Dates: start: 20200504
  15. ONDANSETRON [Concomitant]
     Active Substance: ONDANSETRON
     Indication: NAUSEA
     Dosage: 24 MILLIGRAM
     Route: 048
     Dates: start: 20200406, end: 20200504
  16. TRAMADOL. [Concomitant]
     Active Substance: TRAMADOL
     Dosage: 50 MILLIGRAM
     Route: 042
     Dates: start: 20200502, end: 20200502
  17. DIPIRONE [Concomitant]
     Active Substance: METAMIZOLE SODIUM
     Indication: MUSCULOSKELETAL PAIN
     Dosage: 1 GRAM
     Route: 042
     Dates: start: 20200430
  18. SODIUM CHLORIDE. [Concomitant]
     Active Substance: SODIUM CHLORIDE
     Indication: DEHYDRATION
     Dosage: 1 DOSAGE FORM
     Route: 042
     Dates: start: 20200430
  19. NIVOLUMAB [Suspect]
     Active Substance: NIVOLUMAB
     Indication: MALIGNANT MELANOMA
     Dosage: 360 MILLIGRAM
     Route: 042
     Dates: start: 20200406

REACTIONS (1)
  - Prostatitis [Recovered/Resolved]

NARRATIVE: CASE EVENT DATE: 20200508
